FAERS Safety Report 11844877 (Version 1)
Quarter: 2015Q4

REPORT INFORMATION
  Report Type: Spontaneous
  Country: US (occurrence: None)
  Receive Date: 20151216
  Receipt Date: 20151216
  Transmission Date: 20160305
  Serious: Yes (Other)
  Sender: FDA-Public Use
  Company Number: None

PATIENT
  Age: 62 Year
  Sex: Male
  Weight: 115.67 kg

DRUGS (9)
  1. ILEVRO [Concomitant]
     Active Substance: NEPAFENAC
  2. MITOMYCIN 0.02% SURGERY PHARMACY SERVICES [Suspect]
     Active Substance: MITOMYCIN
     Indication: PROPHYLAXIS
     Dosage: 8 SECOND APPLICATION ?
     Route: 061
     Dates: start: 20150805
  3. MITOMYCIN 0.02% SURGERY PHARMACY SERVICES [Suspect]
     Active Substance: MITOMYCIN
     Indication: CORNEAL OPACITY
     Dosage: 8 SECOND APPLICATION ?
     Route: 061
     Dates: start: 20150805
  4. PUREZOL [Concomitant]
  5. LOTEMAX [Concomitant]
     Active Substance: LOTEPREDNOL ETABONATE
  6. ERYTHROMYCIN BASE [Concomitant]
     Active Substance: ERYTHROMYCIN
  7. PUNCTAL PHIGS [Concomitant]
  8. BESIVANCE [Concomitant]
     Active Substance: BESIFLOXACIN
  9. PRED FORTE [Concomitant]
     Active Substance: PREDNISOLONE ACETATE

REACTIONS (4)
  - Dry eye [None]
  - Photophobia [None]
  - Inflammation [None]
  - Condition aggravated [None]

NARRATIVE: CASE EVENT DATE: 20150805
